FAERS Safety Report 15925650 (Version 1)
Quarter: 2019Q1

REPORT INFORMATION
  Report Type: Spontaneous
  Country: JP (occurrence: JP)
  Receive Date: 20190206
  Receipt Date: 20190206
  Transmission Date: 20190417
  Serious: Yes (Other)
  Sender: FDA-Public Use
  Company Number: JP-SA-2019SA027326

PATIENT
  Age: 3 Year
  Sex: Male

DRUGS (9)
  1. URSODEOXYCHOLIC ACID [Concomitant]
     Active Substance: URSODIOL
     Indication: PROPHYLAXIS
     Dosage: 10 MG/KG/DAY
     Route: 048
  2. FLUDARABINE PHOSPHATE. [Concomitant]
     Active Substance: FLUDARABINE PHOSPHATE
     Indication: PROPHYLAXIS AGAINST TRANSPLANT REJECTION
     Dosage: 45 MG/M2, QD (DAY-9-, -6)
     Route: 042
  3. TACROLIMUS. [Concomitant]
     Active Substance: TACROLIMUS
     Indication: PROPHYLAXIS AGAINST GRAFT VERSUS HOST DISEASE
     Dosage: 5-8 NG/ML, CONTINUOUS IV INFUSION FROM DAY-1
     Route: 042
  4. DALTEPAN [Concomitant]
     Indication: PROPHYLAXIS
     Dosage: 75 U/KG/DAY CONTINUOUS IV INFUSION
     Route: 042
  5. BUSULFAN. [Concomitant]
     Active Substance: BUSULFAN
     Indication: PROPHYLAXIS AGAINST TRANSPLANT REJECTION
     Dosage: 0.5-0.6MG/KG, 1 X
     Route: 065
  6. THYMOGLOBULINE [Suspect]
     Active Substance: LAPINE T-LYMPHOCYTE IMMUNE GLOBULIN
     Indication: PROPHYLAXIS AGAINST TRANSPLANT REJECTION
     Dosage: 1.25 MG/KG, QD (DAY-9, -8)
     Route: 041
  7. METHOTREXATE. [Concomitant]
     Active Substance: METHOTREXATE
     Dosage: 10 MG/M2, DAY 3, 6, 11
     Route: 042
  8. METHOTREXATE. [Concomitant]
     Active Substance: METHOTREXATE
     Indication: PROPHYLAXIS AGAINST GRAFT VERSUS HOST DISEASE
     Dosage: 15 MG/M2, DAY1
     Route: 042
  9. BUSULFAN. [Concomitant]
     Active Substance: BUSULFAN
     Dosage: 16 DOSES
     Route: 065

REACTIONS (6)
  - Thrombocytopenia [Unknown]
  - Autoimmune haemolytic anaemia [Unknown]
  - Viral haemorrhagic cystitis [Recovering/Resolving]
  - Haemophagocytic lymphohistiocytosis [Recovering/Resolving]
  - Autoimmune neutropenia [Unknown]
  - Cytomegalovirus viraemia [Recovering/Resolving]
